FAERS Safety Report 9765376 (Version 1)
Quarter: 2013Q4

REPORT INFORMATION
  Report Type: Spontaneous
  Country: US (occurrence: US)
  Receive Date: 20131217
  Receipt Date: 20131217
  Transmission Date: 20140711
  Serious: No
  Sender: FDA-Public Use
  Company Number: US-GLAXOSMITHKLINE-A1006746A

PATIENT
  Age: 79 Year
  Sex: Male

DRUGS (4)
  1. VOTRIENT [Suspect]
     Route: 065
     Dates: start: 201207
  2. INSULIN LANTUS [Concomitant]
  3. GLUCAGON [Concomitant]
  4. TRAMADOL [Concomitant]

REACTIONS (7)
  - Arthropathy [Unknown]
  - Arthralgia [Unknown]
  - Hypoaesthesia [Unknown]
  - Diarrhoea [Unknown]
  - Blood creatinine increased [Unknown]
  - Blood albumin increased [Unknown]
  - Blood glucose increased [Unknown]
